FAERS Safety Report 17636185 (Version 1)
Quarter: 2020Q2

REPORT INFORMATION
  Report Type: Spontaneous
  Country: US (occurrence: US)
  Receive Date: 20200407
  Receipt Date: 20200407
  Transmission Date: 20200713
  Serious: No
  Sender: FDA-Public Use
  Company Number: US-RECORDATI RARE DISEASES-2082419

PATIENT
  Age: 4 Year
  Sex: Female

DRUGS (1)
  1. CYSTADANE [Suspect]
     Active Substance: BETAINE
     Indication: PRODUCT USED FOR UNKNOWN INDICATION
     Dates: start: 201803

REACTIONS (2)
  - Abdominal discomfort [Unknown]
  - Bowel movement irregularity [Unknown]
